FAERS Safety Report 15485256 (Version 1)
Quarter: 2018Q4

REPORT INFORMATION
  Report Type: Spontaneous
  Country: US (occurrence: US)
  Receive Date: 20181010
  Receipt Date: 20181010
  Transmission Date: 20190205
  Serious: No
  Sender: FDA-Public Use
  Company Number: US-ROCHE-2121604

PATIENT
  Sex: Female

DRUGS (1)
  1. ZELBORAF [Suspect]
     Active Substance: VEMURAFENIB
     Indication: METASTASIS
     Dosage: UNKNOWN
     Route: 048
     Dates: start: 20180409

REACTIONS (3)
  - Rash generalised [Unknown]
  - Swelling [Unknown]
  - Drug intolerance [Unknown]
